FAERS Safety Report 14378819 (Version 3)
Quarter: 2018Q1

REPORT INFORMATION
  Report Type: Spontaneous
  Country: US (occurrence: US)
  Receive Date: 20180112
  Receipt Date: 20180131
  Transmission Date: 20180509
  Serious: No
  Sender: FDA-Public Use
  Company Number: US-B.I. PHARMACEUTICALS,INC./RIDGEFIELD-2018-BI-001138

PATIENT
  Age: 77 Year
  Sex: Female

DRUGS (1)
  1. SPIRIVA [Suspect]
     Active Substance: TIOTROPIUM BROMIDE MONOHYDRATE
     Indication: CHRONIC OBSTRUCTIVE PULMONARY DISEASE
     Route: 055

REACTIONS (6)
  - Gastrooesophageal reflux disease [Unknown]
  - Chronic obstructive pulmonary disease [Unknown]
  - Blood cholesterol abnormal [Unknown]
  - Overdose [Unknown]
  - Rhinitis [Unknown]
  - Product quality issue [Unknown]

NARRATIVE: CASE EVENT DATE: 20180108
